FAERS Safety Report 11870635 (Version 1)
Quarter: 2015Q4

REPORT INFORMATION
  Report Type: Spontaneous
  Country: US (occurrence: None)
  Receive Date: 20151224
  Receipt Date: 20151224
  Transmission Date: 20160305
  Serious: Yes (Hospitalization)
  Sender: FDA-Public Use
  Company Number: None

PATIENT
  Age: 55 Year
  Sex: Male

DRUGS (3)
  1. FUROSEMIDE. [Suspect]
     Active Substance: FUROSEMIDE
     Route: 048
  2. SPIRONOLACTONE. [Concomitant]
     Active Substance: SPIRONOLACTONE
  3. METOLAZONE. [Suspect]
     Active Substance: METOLAZONE
     Indication: CARDIAC FAILURE
     Dosage: 5 MG, EVERY 72 HOURS
     Route: 048
     Dates: start: 20150901, end: 20150903

REACTIONS (13)
  - Presyncope [None]
  - Hypotension [None]
  - Abdominal pain [None]
  - Decreased appetite [None]
  - Acute kidney injury [None]
  - Weight decreased [None]
  - Diarrhoea [None]
  - Somnolence [None]
  - Heart rate decreased [None]
  - Asthenia [None]
  - Fatigue [None]
  - Dyspnoea exertional [None]
  - Cough [None]

NARRATIVE: CASE EVENT DATE: 20150903
